FAERS Safety Report 21578748 (Version 1)
Quarter: 2022Q4

REPORT INFORMATION
  Report Type: Spontaneous
  Country: IT (occurrence: IT)
  Receive Date: 20221110
  Receipt Date: 20221110
  Transmission Date: 20230112
  Serious: Yes (Hospitalization)
  Sender: FDA-Public Use
  Company Number: IT-TEVA-2022-IT-2824353

PATIENT
  Age: 46 Year
  Sex: Female

DRUGS (16)
  1. ETOPOSIDE [Suspect]
     Active Substance: ETOPOSIDE
     Indication: Acute myeloid leukaemia
     Dosage: AS A PART OF MEC REGIMEN CONTAINING ETOPOSIDE 80MG/M 2 AT DAYS 1-6
     Route: 065
     Dates: start: 202005
  2. DAUNORUBICIN [Suspect]
     Active Substance: DAUNORUBICIN
     Indication: Acute myeloid leukaemia
     Dosage: AS A PART OF INDUCTION CHEMOTHERAPY WITH 3 + 7 REGIMEN DAUNORUBICIN 60MG/M 2 DAYS 1,2,3
     Route: 065
     Dates: start: 2019
  3. CYTARABINE [Suspect]
     Active Substance: CYTARABINE
     Indication: Acute myeloid leukaemia
     Dosage: AS A PART OF INDUCTION CHEMOTHERAPY WITH 3 + 7 REGIMEN CYTARABINE 100 MG/M 2 DAYS 1-7
     Route: 065
     Dates: start: 2019
  4. CYTARABINE [Suspect]
     Active Substance: CYTARABINE
     Dosage: AS A PART OF FLA-IDA REGIMEN CONTAINING CYTARABINE 2000 MG/M2 AT DAYS 1-5
     Route: 065
     Dates: start: 201908
  5. CYTARABINE [Suspect]
     Active Substance: CYTARABINE
     Dosage: AS A PART OF FLA3 CHEMOTHERAPY REGIMEN CONTAINING CYTARABINE 2000 MG/M2 AT DAYS 1-3
     Route: 065
     Dates: start: 201909
  6. CYTARABINE [Suspect]
     Active Substance: CYTARABINE
     Dosage: AS A PART OF MEC REGIMEN CONTAINING CYTARABINE 1000MG/M 2 AT DAYS 1-6
     Route: 065
     Dates: start: 202005
  7. MIDOSTAURIN [Suspect]
     Active Substance: MIDOSTAURIN
     Indication: Acute myeloid leukaemia
     Dosage: 100 MILLIGRAM DAILY; AS A PART OF MIDOSTAURIN 50MG EVERY 12 HOURS AT DAYS 8-21 REGIMEN
     Route: 065
     Dates: start: 2019
  8. CYCLOPHOSPHAMIDE [Suspect]
     Active Substance: CYCLOPHOSPHAMIDE
     Indication: Prophylaxis against graft versus host disease
     Route: 065
  9. MITOXANTRONE [Suspect]
     Active Substance: MITOXANTRONE HYDROCHLORIDE
     Indication: Acute myeloid leukaemia
     Dosage: AS A PART OF MEC REGIMEN CONTAINING MITOXANTRONE 6MG/M 2 AT DAYS 1-6
     Route: 065
     Dates: start: 202005
  10. FLUDARABINE [Concomitant]
     Active Substance: FLUDARABINE PHOSPHATE
     Indication: Acute myeloid leukaemia
     Dosage: AS A PART OF FLA-IDA REGIMEN FLUDARABINE 50 MG/M2 AT DAYS 1-5
     Route: 065
     Dates: start: 201908
  11. FLUDARABINE [Concomitant]
     Active Substance: FLUDARABINE PHOSPHATE
     Indication: Bone marrow conditioning regimen
     Dosage: AS A PART OF FLA3 CHEMOTHERAPY REGIMEN FLUDARABINE 50 MG/M2 AT DAYS 1-3
     Route: 065
     Dates: start: 201909
  12. FLUDARABINE [Concomitant]
     Active Substance: FLUDARABINE PHOSPHATE
     Dosage: AS A PART OF TBF REGIMEN
     Route: 065
     Dates: start: 2019
  13. IDARUBICIN [Concomitant]
     Active Substance: IDARUBICIN
     Indication: Acute myeloid leukaemia
     Dosage: AS A PART OF FLA-IDA REGIMEN CONTAINING IDARUBICIN 10 MG/M2 AT DAYS 3,4,5
     Route: 065
     Dates: start: 201908
  14. THIOTEPA [Concomitant]
     Active Substance: THIOTEPA
     Indication: Bone marrow conditioning regimen
     Dosage: AS A PART OF TBF REGIMEN
     Route: 065
     Dates: start: 2019
  15. BUSULFAN [Concomitant]
     Active Substance: BUSULFAN
     Indication: Bone marrow conditioning regimen
     Dosage: AS A PART OF TBF REGIMEN
     Route: 065
     Dates: start: 2019
  16. CYCLOSPORINE [Concomitant]
     Active Substance: CYCLOSPORINE
     Indication: Product used for unknown indication
     Route: 065
     Dates: start: 202002

REACTIONS (4)
  - Septic shock [Unknown]
  - Escherichia infection [Unknown]
  - Pneumonia klebsiella [Unknown]
  - Drug ineffective [Unknown]
